FAERS Safety Report 6782826-2 (Version None)
Quarter: 2010Q2

REPORT INFORMATION
  Report Type: 
  Country: None (occurrence: None)
  Receive Date: 20100616
  Receipt Date: 20100531
  Transmission Date: 20101027
  Serious: Yes (Disabling)
  Sender: FDA-Public Use
  Company Number: 013220

PATIENT
  Sex: Female

DRUGS (3)
  1. LACOSAMIDE [Suspect]
     Dosage: (50 MG BID ORAL)
     Route: 048
     Dates: start: 20090101, end: 20100322
  2. PRIMIDONE [Concomitant]
  3. TRILEPTAL [Concomitant]

REACTIONS (2)
  - DIZZINESS [None]
  - PANIC ATTACK [None]
